FAERS Safety Report 14696263 (Version 3)
Quarter: 2018Q2

REPORT INFORMATION
  Report Type: Spontaneous
  Country: JP (occurrence: JP)
  Receive Date: 20180329
  Receipt Date: 20180417
  Transmission Date: 20180711
  Serious: Yes (Death)
  Sender: FDA-Public Use
  Company Number: JP-MYLANLABS-2018M1020462

PATIENT
  Age: 66 Year
  Sex: Female
  Weight: 41 kg

DRUGS (7)
  1. METRONIDAZOLE. [Interacting]
     Active Substance: METRONIDAZOLE
     Indication: PELVIC ABSCESS
     Dosage: TOTAL BODY EXPOSURE WAS 2G
     Route: 065
  2. LEUCOVORIN                         /00566701/ [Concomitant]
     Active Substance: LEUCOVORIN
     Indication: RECTAL CANCER
     Route: 065
  3. FLUOROURACIL. [Suspect]
     Active Substance: FLUOROURACIL
     Indication: RECTAL CANCER
     Dosage: 530 MG (400 MG/M2)
     Route: 042
  4. OXALIPLATIN. [Concomitant]
     Active Substance: OXALIPLATIN
     Indication: RECTAL CANCER
     Dosage: 110 MG (85 MG/M2)
     Route: 065
  5. CEFTRIAXONE. [Concomitant]
     Active Substance: CEFTRIAXONE
     Indication: PELVIC ABSCESS
     Route: 065
  6. LEVOFOLINATE [Concomitant]
     Active Substance: LEVOLEUCOVORIN CALCIUM
     Indication: PRODUCT USED FOR UNKNOWN INDICATION
     Dosage: 265MG (200 MG/M2)
     Route: 065
  7. FLUOROURACIL. [Interacting]
     Active Substance: FLUOROURACIL
     Dosage: 3200MG (2400 MG/M2)
     Route: 042

REACTIONS (3)
  - Leukoencephalopathy [Fatal]
  - Toxicity to various agents [Fatal]
  - Drug interaction [Fatal]
